FAERS Safety Report 6390511-4 (Version None)
Quarter: 2009Q4

REPORT INFORMATION
  Report Type: 
  Country: None (occurrence: None)
  Receive Date: 20091006
  Receipt Date: 20090924
  Transmission Date: 20100525
  Serious: Yes (Hospitalization)
  Sender: FDA-Public Use
  Company Number: FR-WYE-H11322509

PATIENT
  Age: 71 Year
  Sex: Male

DRUGS (10)
  1. CORDARONE [Suspect]
     Dosage: DOSE AND FREQUENCY NOT SPECIFIED
     Route: 048
     Dates: end: 20090501
  2. KARDEGIC [Concomitant]
     Dosage: DOSE AND FREQUENCY NOT SPECIFIED
     Route: 048
  3. ATORVASTATIN CALCIUM [Concomitant]
     Dosage: DOSE AND FREQUENCY NOT SPECIFIED
     Route: 048
  4. NOVORAPID [Concomitant]
     Dosage: DOSE AND FREQUENCY NOT SPECIFIED
     Route: 058
  5. DIFFU K [Concomitant]
     Dosage: DOSE AND FREQUENCY NOT SPECIFIED
     Route: 048
  6. NEXIUM [Concomitant]
     Dosage: DOSE AND FREQUENCY NOT SPECIFIED
     Route: 048
  7. AMLOR [Concomitant]
     Dosage: DOSE AND FREQUENCY NOT SPECIFIED
     Route: 048
  8. LASILIX [Concomitant]
     Dosage: DOSE AND FREQUENCY NOT SPECIFIED
     Route: 048
  9. TENORMIN [Interacting]
     Dosage: DOSE AND FREQUENCY NOT SPECIFIED
     Route: 048
     Dates: end: 20090501
  10. COVERSYL [Concomitant]
     Dosage: DOSE AND FREQUENCY NOT SPECIFIED
     Route: 048

REACTIONS (5)
  - ATRIOVENTRICULAR BLOCK FIRST DEGREE [None]
  - DRUG INTERACTION [None]
  - ELECTROCARDIOGRAM QT PROLONGED [None]
  - LOSS OF CONSCIOUSNESS [None]
  - SINUS BRADYCARDIA [None]
